FAERS Safety Report 5793307-7 (Version None)
Quarter: 2008Q2

REPORT INFORMATION
  Report Type: 
  Country: None (occurrence: None)
  Receive Date: 20080627
  Receipt Date: 20080625
  Transmission Date: 20081010
  Serious: Yes (Other)
  Sender: FDA-Public Use
  Company Number: A0706840A

PATIENT
  Sex: Female

DRUGS (1)
  1. ALLI [Suspect]
     Indication: WEIGHT LOSS DIET
     Route: 048
     Dates: start: 20080101

REACTIONS (42)
  - ABDOMINAL DISTENSION [None]
  - ADVERSE EVENT [None]
  - ALOPECIA [None]
  - ANOREXIA [None]
  - ANXIETY [None]
  - ARTHRALGIA [None]
  - ASTHENIA [None]
  - BACK PAIN [None]
  - DISCOMFORT [None]
  - DRUG INEFFECTIVE [None]
  - FATIGUE [None]
  - FEELING ABNORMAL [None]
  - FEELING COLD [None]
  - FOOD CRAVING [None]
  - FRUSTRATION [None]
  - GASTROENTERITIS VIRAL [None]
  - GASTROINTESTINAL DISORDER [None]
  - HEADACHE [None]
  - HERPES ZOSTER [None]
  - HYPERPHAGIA [None]
  - INCREASED APPETITE [None]
  - INSOMNIA [None]
  - JOINT INJURY [None]
  - MALAISE [None]
  - MENSTRUAL DISORDER [None]
  - MIGRAINE [None]
  - MUSCLE SPASMS [None]
  - NASOPHARYNGITIS [None]
  - NAUSEA [None]
  - OLIGODIPSIA [None]
  - PREMENSTRUAL SYNDROME [None]
  - PRESYNCOPE [None]
  - RECTAL DISCHARGE [None]
  - SALT CRAVING [None]
  - SENSATION OF HEAVINESS [None]
  - SLUGGISHNESS [None]
  - STEATORRHOEA [None]
  - SUNBURN [None]
  - THIRST [None]
  - UPPER RESPIRATORY TRACT INFECTION [None]
  - WEIGHT FLUCTUATION [None]
  - WEIGHT INCREASED [None]
